FAERS Safety Report 23253760 (Version 1)
Quarter: 2023Q4

REPORT INFORMATION
  Report Type: Spontaneous
  Country: US (occurrence: US)
  Receive Date: 20231202
  Receipt Date: 20231202
  Transmission Date: 20240110
  Serious: Yes (Other)
  Sender: FDA-Public Use
  Company Number: US-ENDO-CASE-0047990

PATIENT
  Sex: Male

DRUGS (16)
  1. PERCOCET [Suspect]
     Active Substance: ACETAMINOPHEN\OXYCODONE HYDROCHLORIDE
  2. ACETAMINOPHEN\HYDROCODONE BITARTRATE [Suspect]
     Active Substance: ACETAMINOPHEN\HYDROCODONE BITARTRATE
  3. ACETAMINOPHEN\OXYCODONE HYDROCHLORIDE [Suspect]
     Active Substance: ACETAMINOPHEN\OXYCODONE HYDROCHLORIDE
  4. TRAMADOL HYDROCHLORIDE [Suspect]
     Active Substance: TRAMADOL HYDROCHLORIDE
  5. ENDOCET [Suspect]
     Active Substance: ACETAMINOPHEN\OXYCODONE HYDROCHLORIDE
  6. HEROIN [Suspect]
     Active Substance: DIAMORPHINE
  7. DILAUDID [Suspect]
     Active Substance: HYDROMORPHONE HYDROCHLORIDE
  8. FENTANYL [Suspect]
     Active Substance: FENTANYL\FENTANYL CITRATE
  9. ACETAMINOPHEN AND CODEINE [Suspect]
     Active Substance: ACETAMINOPHEN\CODEINE PHOSPHATE
  10. OXYMORPHONE HYDROCHLORIDE [Suspect]
     Active Substance: OXYMORPHONE HYDROCHLORIDE
  11. KETAMINE [Suspect]
     Active Substance: KETAMINE
  12. MORPHINE SULFATE [Suspect]
     Active Substance: MORPHINE SULFATE
  13. IBUDONE [Suspect]
     Active Substance: HYDROCODONE BITARTRATE\IBUPROFEN
  14. OPANA [Suspect]
     Active Substance: OXYMORPHONE HYDROCHLORIDE
  15. DEPODUR [Suspect]
     Active Substance: MORPHINE SULFATE
  16. FENTANYL CITRATE [Suspect]
     Active Substance: FENTANYL CITRATE

REACTIONS (1)
  - Dependence [Unknown]
